FAERS Safety Report 25627264 (Version 1)
Quarter: 2025Q3

REPORT INFORMATION
  Report Type: Other
  Country: GB (occurrence: GB)
  Receive Date: 20250731
  Receipt Date: 20250731
  Transmission Date: 20251020
  Serious: Yes (Other)
  Sender: LUPIN
  Company Number: None

PATIENT
  Age: 60 Year

DRUGS (2)
  1. RALTEGRAVIR [Suspect]
     Active Substance: RALTEGRAVIR
     Indication: Product used for unknown indication
     Route: 065
  2. TRUVADA [Suspect]
     Active Substance: EMTRICITABINE\TENOFOVIR DISOPROXIL FUMARATE
     Indication: Product used for unknown indication
     Route: 065

REACTIONS (6)
  - Acute kidney injury [Unknown]
  - Renal impairment [Unknown]
  - Nephropathy toxic [Unknown]
  - Glomerular filtration rate decreased [Unknown]
  - Urine protein/creatinine ratio abnormal [Unknown]
  - Urine albumin/creatinine ratio abnormal [Unknown]
